FAERS Safety Report 17058886 (Version 1)
Quarter: 2019Q4

REPORT INFORMATION
  Report Type: Spontaneous
  Country: DE (occurrence: DE)
  Receive Date: 20191121
  Receipt Date: 20191121
  Transmission Date: 20200122
  Serious: Yes (Hospitalization)
  Sender: FDA-Public Use
  Company Number: DE-JNJFOC-20191122454

PATIENT
  Age: 45 Year
  Sex: Male
  Weight: 82 kg

DRUGS (6)
  1. UNACID [Concomitant]
     Indication: VASCULAR DEVICE INFECTION
     Dosage: 2 X 375 MG TWICE DAILY
  2. ENOXAPARIN [Concomitant]
     Active Substance: ENOXAPARIN
  3. TAPENTADOL [Concomitant]
     Active Substance: TAPENTADOL
     Dosage: 150 MG, QD 1-0-0
  4. RIVAROXABAN [Suspect]
     Active Substance: RIVAROXABAN
     Indication: PRODUCT USED FOR UNKNOWN INDICATION
     Dosage: 15 MG, BID 1-0-1
     Route: 048
     Dates: start: 201906
  5. RIVAROXABAN [Suspect]
     Active Substance: RIVAROXABAN
     Route: 048
  6. TAPENTADOL [Concomitant]
     Active Substance: TAPENTADOL
     Dosage: 100 MG 0-0-1

REACTIONS (1)
  - Venous thrombosis [Unknown]

NARRATIVE: CASE EVENT DATE: 201906
